FAERS Safety Report 21598615 (Version 2)
Quarter: 2022Q4

REPORT INFORMATION
  Report Type: Report from Study
  Country: US (occurrence: US)
  Receive Date: 20221115
  Receipt Date: 20221119
  Transmission Date: 20230112
  Serious: No
  Sender: FDA-Public Use
  Company Number: US-ABBVIE-4163581

PATIENT
  Sex: Female

DRUGS (3)
  1. ORILISSA [Suspect]
     Active Substance: ELAGOLIX SODIUM
     Indication: Endometriosis
     Route: 048
  2. ORILISSA [Suspect]
     Active Substance: ELAGOLIX SODIUM
     Indication: Endometriosis
     Route: 048
     Dates: start: 20220928, end: 20221023
  3. PFIZER-BIONTECH COVID-19 VACCINE [Concomitant]
     Active Substance: TOZINAMERAN
     Indication: COVID-19 immunisation
     Dosage: FREQUENCY : EVERY ONCE
     Route: 030

REACTIONS (8)
  - Blood pressure increased [Unknown]
  - Energy increased [Unknown]
  - Weight decreased [Unknown]
  - Contusion [Unknown]
  - Amenorrhoea [Unknown]
  - Pollakiuria [Recovered/Resolved]
  - Therapeutic product effect decreased [Unknown]
  - Hypertension [Unknown]
